FAERS Safety Report 24253410 (Version 1)
Quarter: 2024Q3

REPORT INFORMATION
  Report Type: Report from Study
  Country: US (occurrence: US)
  Receive Date: 20240827
  Receipt Date: 20240827
  Transmission Date: 20241016
  Serious: Yes (Death)
  Sender: BAYER
  Company Number: US-BAYER-2024A122471

PATIENT
  Age: 42 Year
  Sex: Female

DRUGS (1)
  1. ADEMPAS [Suspect]
     Active Substance: RIOCIGUAT
     Indication: Pulmonary hypertension

REACTIONS (1)
  - Death [Fatal]

NARRATIVE: CASE EVENT DATE: 20240823
